FAERS Safety Report 5063662-4 (Version None)
Quarter: 2006Q3

REPORT INFORMATION
  Report Type: 
  Country: None (occurrence: None)
  Receive Date: 20060727
  Receipt Date: 20060607
  Transmission Date: 20061208
  Serious: Yes (Death)
  Sender: FDA-Public Use
  Company Number: AU-BRISTOL-MYERS SQUIBB COMPANY-13407036

PATIENT
  Age: 74 Year
  Sex: Male
  Weight: 123 kg

DRUGS (19)
  1. ERBITUX [Suspect]
     Indication: COLORECTAL CANCER METASTATIC
     Route: 041
     Dates: start: 20050831
  2. IRINOTECAN HCL [Suspect]
     Indication: COLORECTAL CANCER METASTATIC
     Route: 042
     Dates: start: 20050831
  3. FOLINIC ACID [Suspect]
     Indication: COLORECTAL CANCER METASTATIC
     Route: 042
     Dates: start: 20050831
  4. FLUOROPLEX [Suspect]
     Indication: COLORECTAL CANCER METASTATIC
     Route: 042
     Dates: start: 20050831
  5. OMEPRAZOLE [Concomitant]
     Indication: GASTROOESOPHAGEAL REFLUX DISEASE
     Dates: start: 20050701, end: 20060604
  6. NIFEDIPINE [Concomitant]
     Indication: HYPERTENSION
  7. NITRAZEPAM [Concomitant]
     Indication: INSOMNIA
     Dates: start: 20040701, end: 20060604
  8. AVAPRO HCT [Concomitant]
     Indication: HYPERTENSION
  9. PROPANOL [Concomitant]
     Indication: HYPERTENSION
  10. MINOCYCLINE HCL [Concomitant]
     Indication: RASH
     Dates: start: 20050914, end: 20060604
  11. BETAMETHASONE [Concomitant]
     Indication: PARONYCHIA
     Dates: start: 20051012, end: 20060604
  12. HYDROCORTISONE TAB [Concomitant]
     Indication: RASH
     Dates: start: 20050212, end: 20060604
  13. BETADINE [Concomitant]
     Indication: PARONYCHIA
     Dates: start: 20051130, end: 20060604
  14. PREDNEFRIN [Concomitant]
     Indication: OCULAR HYPERAEMIA
     Dates: start: 20051223, end: 20060604
  15. PHENERGAN HCL [Concomitant]
     Indication: PREMEDICATION
  16. ONDANSETRON HCL [Concomitant]
     Indication: NAUSEA
     Dates: start: 20060413, end: 20060417
  17. DEXAMETHASONE TAB [Concomitant]
     Indication: PREMEDICATION
  18. CALAMINE [Concomitant]
     Indication: RASH
     Dates: start: 20050910, end: 20051011
  19. LANOLIN [Concomitant]
     Indication: RASH
     Dates: start: 20050910, end: 20051011

REACTIONS (1)
  - ACUTE MYOCARDIAL INFARCTION [None]
